FAERS Safety Report 6247916-1 (Version None)
Quarter: 2009Q2

REPORT INFORMATION
  Report Type: 
  Country: None (occurrence: None)
  Receive Date: 20090626
  Receipt Date: 20090615
  Transmission Date: 20091009
  Serious: Yes (Other)
  Sender: FDA-Public Use
  Company Number: PHHY2009BR23495

PATIENT
  Sex: Female

DRUGS (5)
  1. DIOVAN HCT [Suspect]
     Indication: HYPERTENSION
     Dosage: 1 TABLET (160/12.5 MG) IN THE MORNING
     Route: 048
     Dates: end: 20090301
  2. DIOVAN [Suspect]
     Indication: HYPERTENSION
     Dosage: 160 MG/DAY
  3. DIOVAN [Suspect]
     Dosage: 320 MG/DAY
     Dates: start: 20090301
  4. METFORMIN [Concomitant]
     Indication: DIABETES MELLITUS
     Dosage: 1 DF, BID
     Route: 048
     Dates: start: 20090301
  5. ARILEX [Concomitant]
     Indication: DIABETES MELLITUS
     Dosage: 1 TABLET (6 MG) IN THE MORNING
     Route: 048
     Dates: start: 20090301

REACTIONS (1)
  - DIABETES MELLITUS INADEQUATE CONTROL [None]
